FAERS Safety Report 7563376-2 (Version None)
Quarter: 2011Q2

REPORT INFORMATION
  Report Type: 
  Country: None (occurrence: None)
  Receive Date: 20110622
  Receipt Date: 20110616
  Transmission Date: 20111010
  Serious: Yes (Hospitalization)
  Sender: FDA-Public Use
  Company Number: A0931740A

PATIENT
  Age: 69 Year
  Sex: Female

DRUGS (5)
  1. PROAIR HFA [Concomitant]
  2. CALCIUM CARBONATE [Concomitant]
  3. ADVAIR DISKUS 100/50 [Suspect]
     Indication: CHRONIC OBSTRUCTIVE PULMONARY DISEASE
     Dosage: 1PUFF PER DAY
     Route: 055
     Dates: start: 20040601, end: 20110607
  4. OMEPRAZOLE [Concomitant]
  5. COMBIVENT [Concomitant]

REACTIONS (11)
  - COUGH [None]
  - ABDOMINAL PAIN UPPER [None]
  - DYSPNOEA [None]
  - NECK PAIN [None]
  - ATRIAL FIBRILLATION [None]
  - ATRIAL FLUTTER [None]
  - BLOOD PRESSURE INCREASED [None]
  - HEART RATE INCREASED [None]
  - BACK PAIN [None]
  - CHRONIC OBSTRUCTIVE PULMONARY DISEASE [None]
  - PYREXIA [None]
